FAERS Safety Report 22031727 (Version 1)
Quarter: 2023Q1

REPORT INFORMATION
  Report Type: Spontaneous
  Country: FR (occurrence: FR)
  Receive Date: 20230224
  Receipt Date: 20230224
  Transmission Date: 20230417
  Serious: Yes (Hospitalization)
  Sender: FDA-Public Use
  Company Number: None

PATIENT
  Age: 14 Year
  Sex: Female
  Weight: 95 kg

DRUGS (5)
  1. ACYCLOVIR [Suspect]
     Active Substance: ACYCLOVIR
     Indication: Poisoning deliberate
     Dates: start: 20230110, end: 20230110
  2. DOLIPRANE [Suspect]
     Active Substance: ACETAMINOPHEN
     Indication: Poisoning deliberate
     Dates: start: 20230110, end: 20230110
  3. CYAMEMAZINE [Suspect]
     Active Substance: CYAMEMAZINE
     Indication: Poisoning deliberate
     Dates: start: 20230110, end: 20230110
  4. RACECADOTRIL [Suspect]
     Active Substance: RACECADOTRIL
     Indication: Poisoning deliberate
     Dates: start: 20230110, end: 20230110
  5. EBASTINE [Suspect]
     Active Substance: EBASTINE
     Indication: Poisoning deliberate
     Dates: start: 20230110, end: 20230110

REACTIONS (3)
  - Decreased appetite [Recovered/Resolved]
  - Somnolence [Recovered/Resolved]
  - Dizziness [Recovered/Resolved]

NARRATIVE: CASE EVENT DATE: 20230111
